FAERS Safety Report 15817747 (Version 1)
Quarter: 2019Q1

REPORT INFORMATION
  Report Type: Spontaneous
  Country: HR (occurrence: HR)
  Receive Date: 20190113
  Receipt Date: 20190113
  Transmission Date: 20190417
  Serious: Yes (Other)
  Sender: FDA-Public Use
  Company Number: HR-TEVA-2019-HR-998246

PATIENT
  Sex: Female

DRUGS (3)
  1. LOQUEN [Suspect]
     Active Substance: QUETIAPINE FUMARATE
     Dosage: 4 GRAM DAILY;
     Route: 048
     Dates: start: 20181020, end: 20181020
  2. MIRZATEN FILMOM OBLOZENE TABLETE 30 MG [Suspect]
     Active Substance: MIRTAZAPINE
     Dosage: 900 MILLIGRAM DAILY;
     Route: 048
     Dates: start: 20181020, end: 20181020
  3. ELICEA [Suspect]
     Active Substance: ESCITALOPRAM OXALATE
     Dosage: 280 MILLIGRAM DAILY;
     Route: 048
     Dates: start: 20181020, end: 20181020

REACTIONS (4)
  - Suicide attempt [Unknown]
  - Agitation [Unknown]
  - Communication disorder [Unknown]
  - Dyskinesia [Unknown]

NARRATIVE: CASE EVENT DATE: 2018
